FAERS Safety Report 11944400 (Version 1)
Quarter: 2016Q1

REPORT INFORMATION
  Report Type: Spontaneous
  Country: US (occurrence: US)
  Receive Date: 20160125
  Receipt Date: 20160125
  Transmission Date: 20160526
  Serious: No
  Sender: FDA-Public Use
  Company Number: US-BIOGEN-2016BI00172339

PATIENT
  Sex: Female

DRUGS (2)
  1. AVONEX [Suspect]
     Active Substance: INTERFERON BETA-1A
     Indication: MULTIPLE SCLEROSIS
     Route: 030
     Dates: start: 20120419, end: 20121122
  2. AVONEX [Interacting]
     Active Substance: INTERFERON BETA-1A
     Route: 030

REACTIONS (1)
  - Hypoacusis [Not Recovered/Not Resolved]
